FAERS Safety Report 7831924-0 (Version None)
Quarter: 2011Q4

REPORT INFORMATION
  Report Type: 
  Country: None (occurrence: None)
  Receive Date: 20111021
  Receipt Date: 20111014
  Transmission Date: 20120403
  Serious: Yes (Other)
  Sender: FDA-Public Use
  Company Number: US-MERCK-1110USA02467

PATIENT
  Age: 17 Year
  Sex: Male

DRUGS (2)
  1. SINGULAIR [Suspect]
     Indication: RHINITIS ALLERGIC
     Route: 048
     Dates: start: 20101101
  2. SINGULAIR [Suspect]
     Route: 048

REACTIONS (2)
  - PANIC ATTACK [None]
  - SUICIDAL IDEATION [None]
